FAERS Safety Report 20474815 (Version 1)
Quarter: 2022Q1

REPORT INFORMATION
  Report Type: Report from Study
  Country: US (occurrence: US)
  Receive Date: 20220215
  Receipt Date: 20220215
  Transmission Date: 20220423
  Serious: Yes (Other)
  Sender: FDA-Public Use
  Company Number: US-BAYER-2022A020447

PATIENT
  Age: 58 Year
  Sex: Female

DRUGS (1)
  1. STIVARGA [Suspect]
     Active Substance: REGORAFENIB
     Indication: Colon cancer
     Dosage: DAILY DOSE 160 MG FOR 21 DAYS THEN 7 DAYS OFF
     Route: 048
     Dates: start: 20190819

REACTIONS (3)
  - Haemorrhagic diathesis [Unknown]
  - Respiratory symptom [Unknown]
  - Medical procedure [Unknown]
